FAERS Safety Report 5878657-8 (Version None)
Quarter: 2008Q3

REPORT INFORMATION
  Report Type: 
  Country: None (occurrence: None)
  Receive Date: 20080910
  Receipt Date: 20080825
  Transmission Date: 20090109
  Serious: Yes (Other)
  Sender: FDA-Public Use
  Company Number: 8036697

PATIENT
  Sex: Male

DRUGS (2)
  1. KEPPRA [Suspect]
     Indication: CONVULSION
     Dosage: 500 MG 2/D
  2. KEPPRA [Suspect]
     Indication: CONVULSION
     Dosage: 1000 MG

REACTIONS (1)
  - PLATELET COUNT DECREASED [None]
